FAERS Safety Report 10096011 (Version 1)
Quarter: 2014Q2

REPORT INFORMATION
  Report Type: Spontaneous
  Country: US (occurrence: US)
  Receive Date: 20140422
  Receipt Date: 20140422
  Transmission Date: 20141212
  Serious: Yes (Death)
  Sender: FDA-Public Use
  Company Number: US-GLAXOSMITHKLINE-A1070223A

PATIENT
  Age: 61 Year
  Sex: Female

DRUGS (17)
  1. LASIX [Concomitant]
  2. LANOXIN [Concomitant]
  3. COREG [Concomitant]
  4. COLACE [Concomitant]
  5. VOTRIENT [Suspect]
     Indication: KAPOSI^S SARCOMA
     Dosage: 600MG PER DAY
     Route: 048
     Dates: start: 20140303, end: 20140326
  6. VITAMIN D3 [Concomitant]
  7. MAG-OX [Concomitant]
  8. HYDROMORPHONE [Concomitant]
  9. FENTANYL [Concomitant]
  10. WARFARIN [Concomitant]
  11. LISINOPRIL [Concomitant]
  12. PEPCID [Concomitant]
  13. KCL [Concomitant]
  14. MIRALAX [Concomitant]
  15. METROGEL [Concomitant]
  16. MARINOL [Concomitant]
  17. LEVAQUIN [Concomitant]

REACTIONS (1)
  - Death [Fatal]
